FAERS Safety Report 25095964 (Version 2)
Quarter: 2025Q2

REPORT INFORMATION
  Report Type: Report from Study
  Country: CA (occurrence: CA)
  Receive Date: 20250319
  Receipt Date: 20250402
  Transmission Date: 20250716
  Serious: Yes (Other)
  Sender: BAUSCH AND LOMB
  Company Number: CA-BAUSCH-BL-2025-003467

PATIENT
  Age: 70 Year
  Sex: Male

DRUGS (5)
  1. SILIQ [Suspect]
     Active Substance: BRODALUMAB
     Indication: Psoriasis
     Dosage: 210 MG / 1.5 ML, WEEKLY (WEEK 0, 1)
     Route: 058
     Dates: start: 20250305
  2. AMLODIPINE [Suspect]
     Active Substance: AMLODIPINE BESYLATE
     Indication: Blood pressure management
     Route: 065
  3. PERINDOPRIL [Concomitant]
     Active Substance: PERINDOPRIL
     Indication: Blood pressure management
     Route: 065
  4. ALLOPURINOL [Concomitant]
     Active Substance: ALLOPURINOL
     Indication: Renal lithiasis prophylaxis
     Route: 065
  5. RIVOTRIL [Concomitant]
     Active Substance: CLONAZEPAM
     Indication: Stress
     Route: 065

REACTIONS (4)
  - Blood pressure increased [Recovering/Resolving]
  - Influenza like illness [Unknown]
  - Oropharyngeal pain [Unknown]
  - Nasopharyngitis [Unknown]

NARRATIVE: CASE EVENT DATE: 20250311
